FAERS Safety Report 10986583 (Version 2)
Quarter: 2015Q2

REPORT INFORMATION
  Report Type: Spontaneous
  Country: US (occurrence: None)
  Receive Date: 20150319
  Receipt Date: 20150616
  Transmission Date: 20150821
  Serious: Yes (Hospitalization)
  Sender: FDA-Public Use
  Company Number: 1713747-2015-99982

PATIENT
  Age: 72 Year
  Sex: Female

DRUGS (12)
  1. ASAPIR [Concomitant]
  2. DOCUSATE [Concomitant]
     Active Substance: DOCUSATE
  3. LORATADINE. [Concomitant]
     Active Substance: LORATADINE
  4. LIBERTY CYCLER [Concomitant]
     Active Substance: DEVICE
  5. LACTULOSE. [Concomitant]
     Active Substance: LACTULOSE
  6. LIBERTY CYCLER SET [Concomitant]
     Active Substance: DEVICE
  7. CLONIDINE. [Concomitant]
     Active Substance: CLONIDINE
  8. NIFEDEIPINE [Concomitant]
  9. ACETOMINIPHEN [Concomitant]
  10. DELFLEX [Suspect]
     Active Substance: CALCIUM CHLORIDE\DEXTROSE MONOHYDRATE\MAGNESIUM CHLORIDE\SODIUM CHLORIDE\SODIUM LACTATE
     Dosage: PERITONEAL DIALYSIS ?
     Dates: start: 20150119
  11. FAMOTIDINE. [Concomitant]
     Active Substance: FAMOTIDINE
  12. MULTIVITAMIN [Concomitant]
     Active Substance: VITAMINS

REACTIONS (1)
  - Peritonitis [None]

NARRATIVE: CASE EVENT DATE: 20150119
